FAERS Safety Report 6449899-8 (Version None)
Quarter: 2009Q4

REPORT INFORMATION
  Report Type: 
  Country: None (occurrence: None)
  Receive Date: 20091123
  Receipt Date: 20091113
  Transmission Date: 20100525
  Serious: Yes (Hospitalization)
  Sender: FDA-Public Use
  Company Number: US-BIOGENIDEC-2008BI029405

PATIENT
  Age: 53 Year
  Sex: Male

DRUGS (4)
  1. TYSABRI [Suspect]
     Indication: MULTIPLE SCLEROSIS
     Route: 042
     Dates: start: 20061102, end: 20081002
  2. AVONEX [Concomitant]
     Indication: MULTIPLE SCLEROSIS
  3. COREG [Concomitant]
     Indication: HYPERTENSION
  4. DILTIAZEM [Concomitant]
     Indication: HYPERTENSION

REACTIONS (13)
  - ABSCESS LIMB [None]
  - ARTHRITIS INFECTIVE [None]
  - CELLULITIS [None]
  - DERMATITIS [None]
  - FALL [None]
  - OEDEMA PERIPHERAL [None]
  - PAIN IN EXTREMITY [None]
  - SKIN EXFOLIATION [None]
  - SKIN FISSURES [None]
  - SKIN HAEMORRHAGE [None]
  - SKIN LACERATION [None]
  - SWELLING [None]
  - WEIGHT INCREASED [None]
